FAERS Safety Report 26099562 (Version 1)
Quarter: 2025Q4

REPORT INFORMATION
  Report Type: Report from Study
  Country: US (occurrence: None)
  Receive Date: 20251128
  Receipt Date: 20251128
  Transmission Date: 20260118
  Serious: Yes (Other)
  Sender: UCB
  Company Number: US-UCBSA-2025073309

PATIENT
  Age: 13 Year
  Weight: 32.8 kg

DRUGS (1)
  1. FENFLURAMINE [Suspect]
     Active Substance: FENFLURAMINE
     Indication: Lennox-Gastaut syndrome
     Dosage: UNK

REACTIONS (1)
  - Tricuspid valve incompetence [Not Recovered/Not Resolved]
